FAERS Safety Report 12775858 (Version 2)
Quarter: 2016Q3

REPORT INFORMATION
  Report Type: Report from Study
  Country: JP (occurrence: JP)
  Receive Date: 20160923
  Receipt Date: 20160928
  Transmission Date: 20161109
  Serious: Yes (Hospitalization)
  Sender: FDA-Public Use
  Company Number: JP-NOVOPROD-510637

PATIENT
  Age: 46 Year
  Sex: Male

DRUGS (6)
  1. NOVONORM [Suspect]
     Active Substance: REPAGLINIDE
     Dosage: 0.25 MG, TID
     Route: 048
     Dates: start: 20160916
  2. TRESIBA CHU [Concomitant]
     Active Substance: INSULIN DEGLUDEC
     Dosage: 29 U, QD
     Dates: start: 20160914
  3. METFORMIN [Concomitant]
     Active Substance: METFORMIN HYDROCHLORIDE
     Indication: TYPE 2 DIABETES MELLITUS
     Dosage: UNK
     Dates: end: 20160912
  4. TRESIBA CHU [Concomitant]
     Active Substance: INSULIN DEGLUDEC
     Indication: TYPE 2 DIABETES MELLITUS
     Dosage: UNK
     Dates: end: 20160912
  5. METFORMIN [Concomitant]
     Active Substance: METFORMIN HYDROCHLORIDE
     Dosage: UNK
     Dates: start: 20160916
  6. NOVONORM [Suspect]
     Active Substance: REPAGLINIDE
     Indication: TYPE 2 DIABETES MELLITUS
     Dosage: 0.25 MG, TID
     Route: 048
     Dates: start: 20160912, end: 20160912

REACTIONS (1)
  - Enterocolitis [Recovered/Resolved]

NARRATIVE: CASE EVENT DATE: 20160912
